FAERS Safety Report 19602253 (Version 1)
Quarter: 2021Q3

REPORT INFORMATION
  Report Type: Spontaneous
  Country: CA (occurrence: CA)
  Receive Date: 20210724
  Receipt Date: 20210724
  Transmission Date: 20211014
  Serious: Yes (Other)
  Sender: FDA-Public Use
  Company Number: CA-ROCHE-2874246

PATIENT
  Age: 37 Year
  Sex: Male

DRUGS (9)
  1. PREDNISONE. [Concomitant]
     Active Substance: PREDNISONE
  2. INDOMETHACIN. [Concomitant]
     Active Substance: INDOMETHACIN
  3. MAGNESIUM [Concomitant]
     Active Substance: MAGNESIUM
  4. RAMIPRIL. [Concomitant]
     Active Substance: RAMIPRIL
  5. MORPHINE [Concomitant]
     Active Substance: MORPHINE
  6. OTEZLA [Concomitant]
     Active Substance: APREMILAST
  7. RISEDRONATE [Concomitant]
     Active Substance: RISEDRONATE SODIUM
  8. RITUXIMAB. [Suspect]
     Active Substance: RITUXIMAB
     Indication: GRANULOMATOSIS WITH POLYANGIITIS
     Route: 065
  9. PANTOPRAZOLE [Concomitant]
     Active Substance: PANTOPRAZOLE

REACTIONS (4)
  - Arthralgia [Unknown]
  - Psoriasis [Unknown]
  - Nasal septum deviation [Unknown]
  - Hypertension [Unknown]
